FAERS Safety Report 7973633-3 (Version None)
Quarter: 2011Q4

REPORT INFORMATION
  Report Type: 
  Country: None (occurrence: None)
  Receive Date: 20111213
  Receipt Date: 20111205
  Transmission Date: 20120403
  Serious: Yes (Other)
  Sender: FDA-Public Use
  Company Number: DE-B.I. PHARMACEUTICALS,INC./RIDGEFIELD-2011-DE-05240DE

PATIENT
  Sex: Male

DRUGS (4)
  1. PRADAXA [Suspect]
     Indication: ATRIAL FIBRILLATION
     Dosage: 300 MG
     Route: 048
     Dates: start: 20110901, end: 20110929
  2. BISOPROLOL FUMARATE [Concomitant]
     Dosage: 10 MG
     Route: 048
  3. RAMIPRIL [Concomitant]
     Dosage: 5 MG
  4. SIMVASTATIN [Concomitant]

REACTIONS (2)
  - HEPATIC ENZYME ABNORMAL [None]
  - GAMMA-GLUTAMYLTRANSFERASE INCREASED [None]
